FAERS Safety Report 5493920-0 (Version None)
Quarter: 2007Q4

REPORT INFORMATION
  Report Type: 
  Country: None (occurrence: None)
  Receive Date: 20071023
  Receipt Date: 20071018
  Transmission Date: 20080405
  Serious: Yes (Other)
  Sender: FDA-Public Use
  Company Number: GB-MERCK-0611GBR00038

PATIENT
  Age: 82 Year
  Sex: Female
  Weight: 128 kg

DRUGS (6)
  1. TIMOPTIC [Suspect]
     Indication: GLAUCOMA
     Route: 047
     Dates: start: 20061010, end: 20061012
  2. AMARYL [Concomitant]
     Indication: DIABETES MELLITUS
     Route: 048
     Dates: start: 20050101
  3. AMLODIPINE BESYLATE [Concomitant]
     Indication: HYPERTENSION
     Route: 048
     Dates: start: 20010101
  4. PERINDOPRIL [Concomitant]
     Indication: HYPERTENSION
     Route: 048
     Dates: start: 20040101
  5. XALATAN [Concomitant]
     Indication: GLAUCOMA
     Route: 047
     Dates: start: 20010101, end: 20060925
  6. BIMATOPROST [Suspect]
     Indication: GLAUCOMA
     Route: 047
     Dates: start: 20061010, end: 20061012

REACTIONS (2)
  - DYSPNOEA [None]
  - HYPERVENTILATION [None]
